FAERS Safety Report 8190570-2 (Version None)
Quarter: 2012Q1

REPORT INFORMATION
  Report Type: 
  Country: None (occurrence: None)
  Receive Date: 20120307
  Receipt Date: 20120224
  Transmission Date: 20120608
  Serious: Yes (Hospitalization)
  Sender: FDA-Public Use
  Company Number: DE-FRI-1000028816

PATIENT
  Sex: Female

DRUGS (5)
  1. SIMVASTATIN [Suspect]
     Dosage: 240 MG
     Route: 048
     Dates: start: 20120224, end: 20120224
  2. RAMIPRIL [Suspect]
     Dosage: 15 MG
     Route: 048
     Dates: start: 20120224, end: 20120224
  3. PANTOPRAZOLE [Suspect]
     Dosage: 120 MG
     Route: 048
     Dates: start: 20120224, end: 20120224
  4. MEMANTINE [Suspect]
     Dosage: 60 MG
     Route: 048
     Dates: start: 20120224, end: 20120224
  5. FERROUS SULFATE TAB [Suspect]
     Dosage: 3 DF
     Route: 048
     Dates: start: 20120224, end: 20120224

REACTIONS (2)
  - PERSONALITY CHANGE [None]
  - ACCIDENTAL OVERDOSE [None]
